FAERS Safety Report 7733796-1 (Version None)
Quarter: 2011Q3

REPORT INFORMATION
  Report Type: 
  Country: None (occurrence: None)
  Receive Date: 20110907
  Receipt Date: 20110902
  Transmission Date: 20111222
  Serious: Yes (Other)
  Sender: FDA-Public Use
  Company Number: PHEH2011US03344

PATIENT
  Sex: Female

DRUGS (8)
  1. EXTAVIA [Suspect]
     Dosage: 0.3 MG, QOD
     Route: 058
  2. VICODIN [Concomitant]
     Dosage: UNK UKN, UNK
  3. BENAZEPRIL HYDROCHLORIDE [Concomitant]
     Dosage: UNK UKN, UNK
  4. DRUG USED IN DIABETES [Concomitant]
     Dosage: UNK UKN, UNK
  5. PROZAC [Concomitant]
     Dosage: UNK UKN, UNK
  6. METOPROLOL [Concomitant]
     Dosage: UNK UKN, UNK
  7. SYNTHROID [Concomitant]
     Dosage: UNK UKN, UNK
  8. FLEXERIL [Concomitant]
     Dosage: UNK UKN, UNK

REACTIONS (6)
  - DEPRESSED MOOD [None]
  - GAIT DISTURBANCE [None]
  - LIGAMENT SPRAIN [None]
  - DIABETES MELLITUS [None]
  - CONTUSION [None]
  - SPINAL CORD DISORDER [None]
